FAERS Safety Report 5223760-9 (Version None)
Quarter: 2007Q1

REPORT INFORMATION
  Report Type: 
  Country: None (occurrence: None)
  Receive Date: 20070115
  Receipt Date: 20061123
  Transmission Date: 20070707
  Serious: Yes (Life-Threatening)
  Sender: FDA-Public Use
  Company Number: HQWYE482227NOV06

PATIENT
  Age: 84 Year
  Sex: Female

DRUGS (10)
  1. PANTOPRAZOLE SODIUM [Suspect]
     Dosage: 40 MG 1X PER 1 DAY ORAL
     Route: 048
  2. AMIODARONE HCL [Suspect]
  3. AVLOCARDYL (PRORAANOLOL HYDROCHLORIDE, TABLET) [Suspect]
     Dosage: 20 MG 1X PER 1 DAY ORAL
     Route: 048
  4. PERINDOPRIL ERBUMINE [Suspect]
     Dosage: 4 MG 1X PER 1 DAY ORAL
     Route: 048
  5. PAROXETINE HCL [Suspect]
     Dosage: 20 MG 1X PER 1 DAY ORAL
     Route: 048
  6. MOTILIUM [Suspect]
     Indication: NAUSEA
     Dosage: ORAL
     Route: 048
  7. MOTILIUM [Suspect]
     Indication: VOMITING
     Dosage: ORAL
     Route: 048
  8. NEO-MERCAZOLE TAB [Suspect]
     Indication: HYPERTHYROIDISM
     Dosage: 20 MG 1X PER 1 DAY ORAL
     Route: 048
     Dates: start: 20061001, end: 20061018
  9. POTASSIUM CHLORIDE [Concomitant]
  10. FORLAX (MACROGOL) [Concomitant]

REACTIONS (2)
  - BICYTOPENIA [None]
  - HYPERTHYROIDISM [None]
